FAERS Safety Report 8809013 (Version 2)
Quarter: 2013Q1

REPORT INFORMATION
  Report Type: Report from Study
  Country: US (occurrence: US)
  Receive Date: 20120926
  Receipt Date: 20130118
  Transmission Date: 20140127
  Serious: Yes (Hospitalization)
  Sender: FDA-Public Use
  Company Number: US-JNJFOC-20120908765

PATIENT
  Age: 28 Year
  Sex: Female
  Weight: 90 kg

DRUGS (5)
  1. TYLENOL PM [Suspect]
     Indication: PRODUCT USED FOR UNKNOWN INDICATION
     Route: 048
     Dates: start: 20120914
  2. QUETIAPINE [Suspect]
     Indication: PRODUCT USED FOR UNKNOWN INDICATION
     Dosage: 20 TABLETS
     Route: 048
     Dates: start: 20120914
  3. VENLAFAXINE [Concomitant]
  4. FIORICET [Concomitant]
  5. CARBAMAZEPINE [Concomitant]

REACTIONS (4)
  - Overdose [Recovered/Resolved]
  - Self injurious behaviour [Recovered/Resolved]
  - Lethargy [Recovered/Resolved]
  - Agitation [Recovered/Resolved]
